FAERS Safety Report 24027020 (Version 6)
Quarter: 2024Q3

REPORT INFORMATION
  Report Type: Report from Study
  Country: CN (occurrence: CN)
  Receive Date: 20240628
  Receipt Date: 20240710
  Transmission Date: 20241016
  Serious: No
  Sender: ROCHE
  Company Number: CN-ROCHE-3490529

PATIENT
  Age: 78 Year
  Sex: Female
  Weight: 66.0 kg

DRUGS (15)
  1. ALECTINIB [Suspect]
     Active Substance: ALECTINIB
     Indication: Non-small cell lung cancer
     Route: 048
     Dates: start: 20211201
  2. TRIMETAZIDINE DIHYDROCHLORIDE [Concomitant]
     Active Substance: TRIMETAZIDINE DIHYDROCHLORIDE
  3. HERBALS\DIAMMONIUM GLYCYRRHIZINATE [Concomitant]
     Active Substance: HERBALS\DIAMMONIUM GLYCYRRHIZINATE
  4. SILIBININ [Concomitant]
     Active Substance: SILIBININ
  5. ASPIRIN [Concomitant]
     Active Substance: ASPIRIN
     Indication: Atrial fibrillation
     Route: 048
     Dates: start: 20200112, end: 20231121
  6. MONTMORILLONITE [Concomitant]
     Active Substance: MONTMORILLONITE
     Indication: Diarrhoea
  7. LEUCOGEN [Concomitant]
     Active Substance: LEUCOGEN
     Dates: start: 20230106
  8. LACTULOSE [Concomitant]
     Active Substance: LACTULOSE
     Indication: Constipation
  9. GLYCERIN [Concomitant]
     Active Substance: GLYCERIN
  10. RIVAROXABAN [Concomitant]
     Active Substance: RIVAROXABAN
     Indication: Atrial fibrillation
     Route: 048
     Dates: start: 20230611, end: 202309
  11. BRUCEAE SEED OIL [Concomitant]
  12. SHENGXUEFANG [Concomitant]
  13. METOPROLOL SUCCINATE [Concomitant]
     Active Substance: METOPROLOL SUCCINATE
     Indication: Cardiac failure chronic
     Route: 048
     Dates: start: 20230807
  14. FERROUS SUCCINATE [Concomitant]
     Active Substance: FERROUS SUCCINATE
     Indication: Anaemia
     Route: 048
     Dates: start: 20230807, end: 202308
  15. PAMIDRONATE DISODIUM AND GLUCOSE [Concomitant]
     Route: 042
     Dates: start: 20230807, end: 20230808

REACTIONS (5)
  - COVID-19 [Recovered/Resolved]
  - Leukopenia [Recovered/Resolved]
  - Venous thrombosis limb [Recovered/Resolved]
  - Constipation [Recovered/Resolved]
  - Neutrophil count decreased [Recovered/Resolved]

NARRATIVE: CASE EVENT DATE: 20230101
